FAERS Safety Report 6988341-5 (Version None)
Quarter: 2010Q3

REPORT INFORMATION
  Report Type: 
  Country: None (occurrence: None)
  Receive Date: 20100914
  Receipt Date: 20100903
  Transmission Date: 20110219
  Serious: Yes (Hospitalization)
  Sender: FDA-Public Use
  Company Number: JP-1182812

PATIENT
  Age: 83 Year
  Sex: Male

DRUGS (4)
  1. VEGAMOX (MOXIFLOXACIN HYDROCHLORIDE) 0.5% OPHTHALMIC SOLUTION EYE DROP [Suspect]
     Indication: CATARACT OPERATION
     Dosage: 1 GTT 6X/DAY QD, 1 GTT QID OD
     Route: 047
     Dates: start: 20100720, end: 20100721
  2. VEGAMOX (MOXIFLOXACIN HYDROCHLORIDE) 0.5% OPHTHALMIC SOLUTION EYE DROP [Suspect]
     Indication: CATARACT OPERATION
     Dosage: 1 GTT 6X/DAY QD, 1 GTT QID OD
     Route: 047
     Dates: start: 20100722, end: 20100725
  3. RINBETA PF (BETAMETHASONE SODIUM PHOSPHATE) [Concomitant]
  4. BRONUCK (BROMFENAC SODIUM) [Concomitant]

REACTIONS (3)
  - BACTERIAL INFECTION [None]
  - ENDOPHTHALMITIS [None]
  - POST PROCEDURAL INFECTION [None]
